FAERS Safety Report 7035054-X (Version None)
Quarter: 2010Q4

REPORT INFORMATION
  Report Type: 
  Country: None (occurrence: None)
  Receive Date: 20101008
  Receipt Date: 20101004
  Transmission Date: 20110411
  Serious: Yes (Hospitalization)
  Sender: FDA-Public Use
  Company Number: US-ROCHE-730902

PATIENT
  Sex: Female

DRUGS (2)
  1. PEGINTERFERON ALFA-2A [Suspect]
     Indication: HEPATITIS C
     Dosage: FORM: PRE-FILLED SYRINGE
     Route: 065
     Dates: start: 20100911
  2. RIBAVARIN [Suspect]
     Indication: HEPATITIS C
     Route: 065
     Dates: start: 20100911

REACTIONS (3)
  - BLOOD POTASSIUM DECREASED [None]
  - DEHYDRATION [None]
  - INFLUENZA LIKE ILLNESS [None]
